FAERS Safety Report 13918698 (Version 1)
Quarter: 2017Q3

REPORT INFORMATION
  Report Type: Report from Study
  Country: None (occurrence: US)
  Receive Date: 20170829
  Receipt Date: 20170829
  Transmission Date: 20171127
  Serious: Yes (Hospitalization, Other)
  Sender: FDA-Public Use
  Company Number: US-ABBVIE-17K-163-1989129-00

PATIENT
  Age: 52 Year
  Sex: Female

DRUGS (2)
  1. CIPRO [Suspect]
     Active Substance: CIPROFLOXACIN HYDROCHLORIDE
     Indication: PRODUCT USED FOR UNKNOWN INDICATION
     Route: 065
     Dates: start: 2017
  2. HUMIRA [Suspect]
     Active Substance: ADALIMUMAB
     Indication: CROHN^S DISEASE
     Route: 058
     Dates: start: 2015

REACTIONS (5)
  - Post procedural infection [Recovering/Resolving]
  - Crohn^s disease [Recovered/Resolved]
  - Osteoporosis [Unknown]
  - Crohn^s disease [Unknown]
  - Gingival recession [Recovered/Resolved]

NARRATIVE: CASE EVENT DATE: 2017
